FAERS Safety Report 12927939 (Version 2)
Quarter: 2016Q4

REPORT INFORMATION
  Report Type: Spontaneous
  Country: EG (occurrence: EG)
  Receive Date: 20161110
  Receipt Date: 20161128
  Transmission Date: 20170207
  Serious: Yes (Other)
  Sender: FDA-Public Use
  Company Number: PHHY2016EG150096

PATIENT
  Age: 34 Year
  Sex: Female

DRUGS (1)
  1. COSENTYX [Suspect]
     Active Substance: SECUKINUMAB
     Indication: PSORIASIS
     Dosage: 300 MG, TWO DOSES OF 150 MG
     Route: 058
     Dates: start: 20161019, end: 20161019

REACTIONS (8)
  - C-reactive protein increased [Not Recovered/Not Resolved]
  - Tachycardia [Unknown]
  - Psoriasis [Not Recovered/Not Resolved]
  - Platelet count increased [Recovering/Resolving]
  - Oedema peripheral [Not Recovered/Not Resolved]
  - Pyrexia [Unknown]
  - Full blood count abnormal [Unknown]
  - Vomiting [Unknown]

NARRATIVE: CASE EVENT DATE: 20161019
